FAERS Safety Report 4665447-7 (Version None)
Quarter: 2005Q2

REPORT INFORMATION
  Report Type: 
  Country: None (occurrence: None)
  Receive Date: 20050518
  Receipt Date: 20050518
  Transmission Date: 20051028
  Serious: Yes (Hospitalization)
  Sender: FDA-Public Use
  Company Number: None

PATIENT
  Sex: Male

DRUGS (13)
  1. ACARBOSE [Suspect]
     Indication: DIABETES MELLITUS
     Dosage: 25 MG TID ORAL
     Route: 048
  2. GLYBURIDE [Suspect]
     Indication: DIABETES MELLITUS
     Dosage: 5 MG BID ORAL
     Route: 048
  3. ALLOPURINOL [Concomitant]
  4. ASPIRIN [Concomitant]
  5. ATENOLOL [Concomitant]
  6. DIGOXIN [Concomitant]
  7. FELODIPINE [Concomitant]
  8. FERROUS SULFATE TAB [Concomitant]
  9. FUROSEMIDE [Concomitant]
  10. LISINOPRIL [Concomitant]
  11. SIMVASTATIN [Concomitant]
  12. TERAZOSIN [Concomitant]
  13. WARFARIN [Concomitant]

REACTIONS (2)
  - BLOOD GLUCOSE DECREASED [None]
  - LOSS OF CONSCIOUSNESS [None]
